FAERS Safety Report 15633157 (Version 1)
Quarter: 2018Q4

REPORT INFORMATION
  Report Type: Spontaneous
  Country: US (occurrence: US)
  Receive Date: 20181116
  Receipt Date: 20181116
  Transmission Date: 20190205
  Serious: Yes (Life-Threatening, Hospitalization)
  Sender: FDA-Public Use
  Company Number: None

PATIENT
  Age: 63 Year
  Sex: Female
  Weight: 62.6 kg

DRUGS (9)
  1. ADVAIR HFA [Concomitant]
     Active Substance: FLUTICASONE PROPIONATE\SALMETEROL XINAFOATE
  2. CANASA [Concomitant]
     Active Substance: MESALAMINE
  3. PREDNISONE. [Concomitant]
     Active Substance: PREDNISONE
  4. TRIAMCINOLONE [Concomitant]
     Active Substance: TRIAMCINOLONE
  5. ASACOL [Concomitant]
     Active Substance: MESALAMINE
  6. HUMIRA [Suspect]
     Active Substance: ADALIMUMAB
     Indication: ANKYLOSING SPONDYLITIS
     Dosage: 40MG/0.8ML 1 PEN ONCE EVERY TWO WEEKS INJECTION
     Dates: start: 20180725, end: 20180919
  7. HUMIRA [Suspect]
     Active Substance: ADALIMUMAB
     Indication: ARTHRITIS
     Dosage: 40MG/0.8ML 1 PEN ONCE EVERY TWO WEEKS INJECTION
     Dates: start: 20180725, end: 20180919
  8. VESICARE [Concomitant]
     Active Substance: SOLIFENACIN SUCCINATE
  9. VITAMIN D3 [Concomitant]
     Active Substance: CHOLECALCIFEROL

REACTIONS (4)
  - Appendicitis perforated [None]
  - Complicated appendicitis [None]
  - Abscess [None]
  - Sepsis [None]

NARRATIVE: CASE EVENT DATE: 20180928
